FAERS Safety Report 5405572-6 (Version None)
Quarter: 2007Q3

REPORT INFORMATION
  Report Type: 
  Country: None (occurrence: None)
  Receive Date: 20070803
  Receipt Date: 20070727
  Transmission Date: 20080115
  Serious: Yes (Other)
  Sender: FDA-Public Use
  Company Number: GB-PFIZER INC-2007062782

PATIENT
  Age: 50 Year
  Sex: Female
  Weight: 75 kg

DRUGS (1)
  1. FLUCONAZOLE [Suspect]
     Indication: CANDIDIASIS
     Dosage: TEXT:150 MG
     Route: 048
     Dates: start: 20070710, end: 20070711

REACTIONS (4)
  - EYE SWELLING [None]
  - LIP SWELLING [None]
  - PHOTOSENSITIVITY REACTION [None]
  - RASH [None]
